FAERS Safety Report 12395433 (Version 3)
Quarter: 2016Q2

REPORT INFORMATION
  Report Type: Spontaneous
  Country: US (occurrence: US)
  Receive Date: 20160523
  Receipt Date: 20160525
  Transmission Date: 20160815
  Serious: Yes (Other)
  Sender: FDA-Public Use
  Company Number: US-SA-2015SA121347

PATIENT
  Age: 75 Year
  Sex: Female

DRUGS (1)
  1. LANTUS [Suspect]
     Active Substance: INSULIN GLARGINE
     Indication: TYPE 2 DIABETES MELLITUS
     Dosage: THERAPY START DATE: 8-10 YEARS DOSE:10 UNIT(S)
     Route: 065

REACTIONS (5)
  - Glycosylated haemoglobin increased [Unknown]
  - Localised infection [Unknown]
  - Blood glucose decreased [Unknown]
  - Diabetes mellitus [Unknown]
  - Expired product administered [Unknown]

NARRATIVE: CASE EVENT DATE: 2015
